FAERS Safety Report 8986088 (Version 1)
Quarter: 2012Q4

REPORT INFORMATION
  Report Type: 
  Country: US (occurrence: None)
  Receive Date: 20121219
  Receipt Date: 20121219
  Transmission Date: 20130627
  Serious: No
  Sender: FDA-Public Use
  Company Number: None

PATIENT
  Sex: Female

DRUGS (1)
  1. RECLAST [Suspect]
     Dosage: 5 mg, yearly, infusion
     Dates: start: 201211

REACTIONS (3)
  - Diarrhoea [None]
  - Bone pain [None]
  - Headache [None]
